FAERS Safety Report 8974254 (Version 1)
Quarter: 2013Q1

REPORT INFORMATION
  Report Type: Spontaneous
  Country: US (occurrence: None)
  Receive Date: 20121217
  Receipt Date: 20121217
  Transmission Date: 20140127
  Serious: Yes (Hospitalization)
  Sender: FDA-Public Use
  Company Number: None

PATIENT
  Age: 85 Year
  Sex: Female
  Weight: 87.2 kg

DRUGS (6)
  1. DECITABINE [Suspect]
     Indication: MYELODYSPLASTIC SYNDROME
     Route: 058
     Dates: start: 20110802, end: 20120810
  2. DOXYXYCLINE (DOXYCYCLINE) [Concomitant]
  3. LISIONOPRIL [Concomitant]
  4. AMLODIPINE [Concomitant]
  5. TYLENOL [Concomitant]
  6. ACYCLOVIR [Concomitant]

REACTIONS (5)
  - Pyrexia [None]
  - Erythema [None]
  - Drug hypersensitivity [None]
  - Local swelling [None]
  - Infection [None]
